FAERS Safety Report 9347710 (Version 1)
Quarter: 2013Q2

REPORT INFORMATION
  Report Type: Spontaneous
  Country: US (occurrence: US)
  Receive Date: 20130614
  Receipt Date: 20130614
  Transmission Date: 20140414
  Serious: No
  Sender: FDA-Public Use
  Company Number: US-PFIZER INC-2013178648

PATIENT
  Age: 94 Year
  Sex: 0

DRUGS (8)
  1. LOPID [Suspect]
     Dosage: UNK
  2. CIPRO [Suspect]
     Dosage: UNK
  3. CODEINE [Suspect]
     Dosage: UNK
  4. LESCOL [Suspect]
     Dosage: UNK
  5. NAPROSYN [Suspect]
     Dosage: UNK
  6. NIACIN [Suspect]
     Dosage: UNK
  7. QUININE [Suspect]
     Dosage: UNK
  8. PRAVACHOL [Suspect]
     Dosage: UNK

REACTIONS (1)
  - Drug hypersensitivity [Unknown]
